FAERS Safety Report 4463235-8 (Version None)
Quarter: 2004Q3

REPORT INFORMATION
  Report Type: 
  Country: None (occurrence: None)
  Receive Date: 20040930
  Receipt Date: 20040908
  Transmission Date: 20050211
  Serious: Yes (Death)
  Sender: FDA-Public Use
  Company Number: US-GLAXOSMITHKLINE-A0524925A

PATIENT
  Age: 58 Year
  Sex: Female

DRUGS (2)
  1. PAXIL [Suspect]
     Indication: DEPRESSION
     Route: 048
  2. DARVOCET-N 100 [Suspect]
     Indication: BACK PAIN

REACTIONS (2)
  - COMPLETED SUICIDE [None]
  - OVERDOSE [None]
